FAERS Safety Report 13853069 (Version 1)
Quarter: 2017Q3

REPORT INFORMATION
  Report Type: Spontaneous
  Country: US (occurrence: US)
  Receive Date: 20170809
  Receipt Date: 20170809
  Transmission Date: 20171127
  Serious: No
  Sender: FDA-Public Use
  Company Number: US-ROCHE-640299

PATIENT
  Age: 63 Year
  Sex: Female

DRUGS (1)
  1. BONIVA [Suspect]
     Active Substance: IBANDRONATE SODIUM
     Indication: OSTEOPENIA
     Dosage: FORM: PILL
     Route: 065

REACTIONS (7)
  - Myalgia [Unknown]
  - Vomiting [Unknown]
  - Bone pain [Unknown]
  - Dyspepsia [Unknown]
  - Pyrexia [Unknown]
  - Nausea [Unknown]
  - Bone pain [Not Recovered/Not Resolved]

NARRATIVE: CASE EVENT DATE: 20090612
